FAERS Safety Report 11840180 (Version 1)
Quarter: 2015Q4

REPORT INFORMATION
  Report Type: Spontaneous
  Country: US (occurrence: US)
  Receive Date: 20151216
  Receipt Date: 20151216
  Transmission Date: 20160305
  Serious: Yes (Hospitalization, Other)
  Sender: FDA-Public Use
  Company Number: US-PFIZER INC-2015429586

PATIENT
  Age: 31 Year
  Sex: Female
  Weight: 112 kg

DRUGS (9)
  1. TRAMADOL. [Concomitant]
     Active Substance: TRAMADOL
     Indication: NECK PAIN
     Dosage: 150 MG, 3X/DAY
     Dates: start: 201404, end: 201510
  2. PROGESTERONE. [Concomitant]
     Active Substance: PROGESTERONE
     Indication: MENSTRUATION IRREGULAR
  3. LYRICA [Suspect]
     Active Substance: PREGABALIN
     Indication: FIBROMYALGIA
     Dosage: 150 MG, 3X/DAY CAPSULES
     Dates: start: 2013
  4. PROGESTERONE. [Concomitant]
     Active Substance: PROGESTERONE
     Indication: POLYCYSTIC OVARIES
     Dosage: 100MG/2ML INJECTION
     Dates: start: 201505, end: 201510
  5. CYCLOBENZAPRINE [Concomitant]
     Active Substance: CYCLOBENZAPRINE
     Indication: HEADACHE
  6. TRAZODONE [Concomitant]
     Active Substance: TRAZODONE HYDROCHLORIDE
     Indication: INSOMNIA
     Dosage: 100 MG, DAILY AT NIGHT
     Dates: start: 2012
  7. CYCLOBENZAPRINE [Concomitant]
     Active Substance: CYCLOBENZAPRINE
     Indication: NECK PAIN
     Dosage: 10 MG, 3X/DAY TABLET
     Dates: start: 201111, end: 201510
  8. TRAMADOL. [Concomitant]
     Active Substance: TRAMADOL
     Indication: HEADACHE
  9. ALBUTEROL SULFATE. [Concomitant]
     Active Substance: ALBUTEROL SULFATE
     Indication: DYSPNOEA
     Dosage: 2 DF, AS NEEDED; 2 PUFFS; 80-90 MCG PER PUFF
     Dates: start: 199708

REACTIONS (7)
  - Ectopic thyroid [Recovered/Resolved]
  - Pneumonia [Recovered/Resolved]
  - Dysphagia [Recovering/Resolving]
  - Dyspnoea [Not Recovered/Not Resolved]
  - Throat tightness [Recovering/Resolving]
  - Thyroid mass [Not Recovered/Not Resolved]
  - Peripheral swelling [Recovered/Resolved]

NARRATIVE: CASE EVENT DATE: 2013
